FAERS Safety Report 24131114 (Version 1)
Quarter: 2024Q3

REPORT INFORMATION
  Report Type: Report from Study
  Country: US (occurrence: US)
  Receive Date: 20240724
  Receipt Date: 20240724
  Transmission Date: 20241016
  Serious: Yes (Hospitalization)
  Sender: ROCHE
  Company Number: US-ROCHE-10000027308

PATIENT
  Age: 70 Year
  Sex: Male

DRUGS (1)
  1. OCREVUS [Suspect]
     Active Substance: OCRELIZUMAB
     Indication: Relapsing multiple sclerosis
     Dosage: 600MG, EVERY6 MONTH
     Route: 042
     Dates: start: 20190605

REACTIONS (6)
  - Shoulder fracture [Recovered/Resolved]
  - Fall [Unknown]
  - Decubitus ulcer [Recovering/Resolving]
  - Pyrexia [Unknown]
  - COVID-19 [Unknown]
  - Disorientation [Unknown]

NARRATIVE: CASE EVENT DATE: 20240301
